FAERS Safety Report 6232879-5 (Version None)
Quarter: 2009Q2

REPORT INFORMATION
  Report Type: 
  Country: None (occurrence: None)
  Receive Date: 20090617
  Receipt Date: 20090420
  Transmission Date: 20091009
  Serious: No
  Sender: FDA-Public Use
  Company Number: US-ASTRAZENECA-2009UW09957

PATIENT
  Age: 54 Year
  Sex: Female
  Weight: 59 kg

DRUGS (4)
  1. FASLODEX [Suspect]
     Route: 030
     Dates: start: 20090414
  2. DEPAKOTE [Concomitant]
  3. EFFEXOR XR [Concomitant]
  4. TRAZODONE HCL [Concomitant]

REACTIONS (4)
  - HYPERSEXUALITY [None]
  - INSOMNIA [None]
  - MANIA [None]
  - TACHYPHRENIA [None]
